FAERS Safety Report 6702624-5 (Version None)
Quarter: 2010Q2

REPORT INFORMATION
  Report Type: 
  Country: None (occurrence: None)
  Receive Date: 20100429
  Receipt Date: 20100426
  Transmission Date: 20101027
  Serious: Yes (Other)
  Sender: FDA-Public Use
  Company Number: CHPA2010GB07407

PATIENT
  Sex: Male

DRUGS (3)
  1. NICOTINELL TTS (NCH) [Suspect]
     Dosage: UNK,UNK
     Route: 062
  2. VENLAFAXINE [Concomitant]
     Dosage: UNK,UNK
  3. FLUOXETINE [Concomitant]
     Dosage: UNK,UNK

REACTIONS (2)
  - FATIGUE [None]
  - PSYCHOTIC DISORDER [None]
